FAERS Safety Report 15801502 (Version 5)
Quarter: 2019Q2

REPORT INFORMATION
  Report Type: Report from Study
  Country: DE (occurrence: DE)
  Receive Date: 20190109
  Receipt Date: 20190514
  Transmission Date: 20190711
  Serious: Yes (Hospitalization)
  Sender: FDA-Public Use
  Company Number: DE-MYLANLABS-2018M1096864

PATIENT
  Age: 47 Year
  Sex: Male
  Weight: 75 kg

DRUGS (20)
  1. PLACEBO [Suspect]
     Active Substance: UNSPECIFIED INGREDIENT
     Dosage: UNK
     Route: 055
     Dates: end: 20180108
  2. VIGANTOLETTEN [Concomitant]
     Active Substance: CHOLECALCIFEROL
     Indication: VITAMIN D DECREASED
     Dosage: 2000 IU, QD
     Route: 048
     Dates: start: 1998
  3. MUCOCLEAR                          /00075401/ [Concomitant]
     Indication: BRONCHIECTASIS
     Dosage: 4 MILLILITER, BID
     Route: 055
     Dates: start: 2003
  4. MUCOCLEAR [Concomitant]
     Indication: BRONCHIECTASIS
     Dosage: 4 ML, BID
     Route: 055
     Dates: start: 2003
  5. TOBRAMYCIN. [Suspect]
     Active Substance: TOBRAMYCIN
     Indication: PSEUDOMONAS INFECTION
  6. FORMOTEROL [Concomitant]
     Active Substance: FORMOTEROL
     Indication: BRONCHIECTASIS
     Dosage: 9 UG, BID
     Route: 055
     Dates: start: 2003
  7. TOBRAMYCIN. [Suspect]
     Active Substance: TOBRAMYCIN
     Indication: BRONCHIECTASIS
     Dosage: CODE NOT BROKEN
     Route: 055
     Dates: start: 20170919, end: 20180108
  8. FENOTEROL [Concomitant]
     Active Substance: FENOTEROL
     Indication: BRONCHIECTASIS
     Dosage: 50/20 UG PM
     Route: 055
     Dates: start: 2003
  9. PLACEBO [Suspect]
     Active Substance: UNSPECIFIED INGREDIENT
     Dosage: UNK
  10. BUDESONID [Concomitant]
     Active Substance: BUDESONIDE
     Indication: BRONCHIECTASIS
     Dosage: 320 UG, BID
     Route: 055
     Dates: start: 2003
  11. CIPRALEX [Concomitant]
     Active Substance: ESCITALOPRAM OXALATE
     Indication: ADJUSTMENT DISORDER WITH DEPRESSED MOOD
     Dosage: 20 MG, QD
     Route: 048
     Dates: start: 2000
  12. TOBI PODHALER [Suspect]
     Active Substance: TOBRAMYCIN
     Indication: PSEUDOMONAS INFECTION
     Dosage: UNK
  13. PLACEBO [Suspect]
     Active Substance: UNSPECIFIED INGREDIENT
     Dosage: UNK
     Route: 055
  14. SALBUTAMOL [Concomitant]
     Active Substance: ALBUTEROL
     Indication: BRONCHIECTASIS
     Dosage: 125 MG, BID
     Route: 055
     Dates: start: 1995
  15. TIOTROPIUM [Concomitant]
     Active Substance: TIOTROPIUM
     Indication: BRONCHIECTASIS
     Dosage: 18 UG, QD
     Route: 055
     Dates: start: 2003
  16. VIGANTOLETTEN [Concomitant]
     Active Substance: CHOLECALCIFEROL
     Indication: VITAMIN D DEFICIENCY
  17. TOBI PODHALER [Suspect]
     Active Substance: TOBRAMYCIN
     Indication: BRONCHIECTASIS
     Dosage: CODE NOT BROKEN
     Route: 055
     Dates: start: 20170919, end: 20180108
  18. AZITHROMYCIN ANHYDROUS. [Concomitant]
     Active Substance: AZITHROMYCIN ANHYDROUS
     Indication: BRONCHIECTASIS
     Dosage: 500 MG, TIW
     Route: 048
     Dates: start: 2003
  19. CIPRALEX [Concomitant]
     Active Substance: ESCITALOPRAM OXALATE
     Indication: ADJUSTMENT DISORDER WITH DEPRESSED MOOD
     Dosage: 20 MILLIGRAM, QD
     Route: 048
     Dates: start: 2000
  20. IBUPROFEN. [Concomitant]
     Active Substance: IBUPROFEN
     Indication: BACK PAIN
     Dosage: 1200 MG, BID
     Route: 048
     Dates: start: 1995

REACTIONS (2)
  - Infective exacerbation of bronchiectasis [Recovered/Resolved]
  - Dyspnoea [Recovered/Resolved]

NARRATIVE: CASE EVENT DATE: 20171120
